FAERS Safety Report 8576853-2 (Version None)
Quarter: 2012Q3

REPORT INFORMATION
  Report Type: 
  Country: None (occurrence: None)
  Receive Date: 20120807
  Receipt Date: 20120725
  Transmission Date: 20120928
  Serious: No
  Sender: FDA-Public Use
  Company Number: US-ASTRAZENECA-2012SE52554

PATIENT
  Age: 79 Year
  Sex: Female
  Weight: 50.8 kg

DRUGS (7)
  1. THYROID PILL [Concomitant]
     Indication: HYPERTHYROIDISM
  2. ATIVAN [Concomitant]
     Indication: PAIN
  3. PRILOSEC OTC [Suspect]
     Indication: GASTRIC DISORDER
     Dosage: BID
     Route: 048
  4. SEROQUEL [Suspect]
     Indication: SLEEP DISORDER
     Dosage: AT NIGHT
     Route: 048
  5. ATIVAN [Concomitant]
     Indication: NERVOUS SYSTEM DISORDER
  6. LOT OF MEDICATIONS [Concomitant]
  7. SEROQUEL [Suspect]
     Dosage: GENERIC, AT NIGHT
     Route: 048

REACTIONS (3)
  - OFF LABEL USE [None]
  - DRUG INEFFECTIVE [None]
  - GASTRIC DISORDER [None]
